FAERS Safety Report 5116888-5 (Version None)
Quarter: 2006Q3

REPORT INFORMATION
  Report Type: 
  Country: None (occurrence: None)
  Receive Date: 20060925
  Receipt Date: 20060914
  Transmission Date: 20061208
  Serious: Yes (Life-Threatening, Hospitalization, Other)
  Sender: FDA-Public Use
  Company Number: DE-2006-025496

PATIENT
  Age: 72 Year
  Sex: Male
  Weight: 80 kg

DRUGS (10)
  1. ULTRAVIST 300 [Suspect]
     Indication: COMPUTERISED TOMOGRAM ABDOMEN
     Dosage: 150 ML, 1 DOSE, INTRAVENOUS
     Route: 042
     Dates: start: 20060829, end: 20060829
  2. NEXIUM [Concomitant]
  3. MCP (METOCLOPRAMIDE HYDROCHLORIDE [Concomitant]
  4. PERENTEROL (YEAST DRIED) [Concomitant]
  5. ESPUMISAN (DIMETICONE) [Concomitant]
  6. KALINOR [Concomitant]
  7. NOVALGIN (METAMIZOLE SODIUM MONOHYDRATE) [Concomitant]
  8. FRAGMIN P (HEPARIN-FRACTION, SODIUM SALT) [Concomitant]
  9. NAROPIN [Concomitant]
  10. SUFENTA [Concomitant]

REACTIONS (9)
  - AGITATION [None]
  - BLOOD PRESSURE SYSTOLIC INCREASED [None]
  - CHILLS [None]
  - DYSPNOEA [None]
  - HYPERHIDROSIS [None]
  - LIVEDO RETICULARIS [None]
  - PERIPHERAL CIRCULATORY FAILURE [None]
  - STRIDOR [None]
  - TACHYCARDIA [None]
